FAERS Safety Report 8675072 (Version 3)
Quarter: 2014Q1

REPORT INFORMATION
  Report Type: Spontaneous
  Country: US (occurrence: US)
  Receive Date: 20120720
  Receipt Date: 20140303
  Transmission Date: 20141002
  Serious: Yes (Death, Hospitalization, Other)
  Sender: FDA-Public Use
  Company Number: US-TEVA-349039USA

PATIENT
  Age: 66 Year
  Sex: Female
  Weight: 85.81 kg

DRUGS (11)
  1. TREANDA [Suspect]
     Indication: CHRONIC LYMPHOCYTIC LEUKAEMIA
     Dosage: EVERY 28 DAYS
     Route: 042
     Dates: start: 20120323, end: 20120502
  2. RITUXAN [Suspect]
     Dosage: EVERY 28 DAYS
     Route: 042
     Dates: start: 20120323, end: 20120503
  3. ALLOPURINOL [Concomitant]
  4. CIPRO [Concomitant]
  5. DILTIAZEM CD [Concomitant]
  6. FOLIC ACID [Concomitant]
  7. FOSAMAX [Concomitant]
  8. LASIX [Concomitant]
  9. METOPROLOL TARTRATE [Concomitant]
  10. PREDNISONE [Concomitant]
  11. PRILOSEC [Concomitant]

REACTIONS (4)
  - Atrial fibrillation [Fatal]
  - Embolic stroke [Fatal]
  - Disease progression [Fatal]
  - Febrile neutropenia [Unknown]
